FAERS Safety Report 14524945 (Version 1)
Quarter: 2018Q1

REPORT INFORMATION
  Report Type: Spontaneous
  Country: US (occurrence: US)
  Receive Date: 20180210
  Receipt Date: 20180210
  Transmission Date: 20180509
  Serious: Yes (Hospitalization)
  Sender: FDA-Public Use
  Company Number: None

PATIENT
  Age: 82 Year
  Sex: Male

DRUGS (12)
  1. GLUCOSAMINE [Concomitant]
     Active Substance: GLUCOSAMINE
  2. POTASSIUM [Concomitant]
     Active Substance: POTASSIUM
  3. FISH OIL [Concomitant]
     Active Substance: FISH OIL
  4. EZETIMIBE. [Concomitant]
     Active Substance: EZETIMIBE
  5. CLOPIDOGREL [Concomitant]
     Active Substance: CLOPIDOGREL BISULFATE
  6. SIMVASTATIN. [Concomitant]
     Active Substance: SIMVASTATIN
  7. CARB/LEVO [Concomitant]
     Active Substance: CARBIDOPA\LEVODOPA
  8. MEMANTINE. [Concomitant]
     Active Substance: MEMANTINE
  9. ASPIRIN. [Concomitant]
     Active Substance: ASPIRIN
  10. OXYGEN. [Concomitant]
     Active Substance: OXYGEN
  11. NUPLAZID [Suspect]
     Active Substance: PIMAVANSERIN TARTRATE
     Indication: DELUSION
     Route: 048
     Dates: start: 20170618
  12. MULTI VIT [Concomitant]

REACTIONS (1)
  - Cerebrovascular accident [None]

NARRATIVE: CASE EVENT DATE: 20180131
